FAERS Safety Report 10430503 (Version 2)
Quarter: 2014Q3

REPORT INFORMATION
  Report Type: Report from Study
  Country: US (occurrence: US)
  Receive Date: 20140904
  Receipt Date: 20140904
  Transmission Date: 20150326
  Serious: Yes (Other)
  Sender: FDA-Public Use
  Company Number: PHEH2013US025562

PATIENT
  Age: 50 Year
  Sex: Female

DRUGS (16)
  1. TRIAMTERENE AND HYDROCHLOROTHIAZID [Concomitant]
     Active Substance: HYDROCHLOROTHIAZIDE\TRIAMTERENE
     Dosage: 1 DF, DAILY (75 MG/50 MG)
  2. ADDERALL [Concomitant]
     Active Substance: AMPHETAMINE ASPARTATE\AMPHETAMINE SULFATE\DEXTROAMPHETAMINE SACCHARATE\DEXTROAMPHETAMINE SULFATE
     Dosage: 10 MG, 2 TABS IN AM AND 1 IN PM
     Route: 048
  3. DAILY VITE [Concomitant]
     Active Substance: VITAMINS
  4. LOSARTAN POTASSIUM. [Concomitant]
     Active Substance: LOSARTAN POTASSIUM
     Dosage: 1 DF, QD
  5. GILENYA [Suspect]
     Active Substance: FINGOLIMOD HYDROCHLORIDE
     Indication: MULTIPLE SCLEROSIS
     Dosage: 0.5 MG, QD
     Route: 048
     Dates: start: 20131206, end: 20140715
  6. ADDERALL [Concomitant]
     Active Substance: AMPHETAMINE ASPARTATE\AMPHETAMINE SULFATE\DEXTROAMPHETAMINE SACCHARATE\DEXTROAMPHETAMINE SULFATE
     Dosage: 10 MG, 1-2 DAILY
     Route: 048
  7. HYDROCHLOORTHIAZIDE [Concomitant]
     Active Substance: HYDROCHLOROTHIAZIDE
     Dosage: 1 DF, QD
     Route: 048
  8. LEVOTHYROXINE SODIUM. [Concomitant]
     Active Substance: LEVOTHYROXINE SODIUM
     Dosage: 88 UG, QD
     Route: 048
  9. AMITRIPTYLINE HCL [Concomitant]
     Active Substance: AMITRIPTYLINE
     Dosage: 10 MG,PO QHS X 1 WEEK, THEN 2 TABS PO
     Route: 048
  10. TRIAMTERENE AND HYDROCHLOROTHIAZID [Concomitant]
     Active Substance: HYDROCHLOROTHIAZIDE\TRIAMTERENE
     Indication: HYPERTENSION
     Dosage: 1 DF, DAILY (37.5 / 25 MG) TABLET
  11. GABAPENTIN. [Concomitant]
     Active Substance: GABAPENTIN
     Indication: NEURALGIA
     Dosage: 2 DF, TID
  12. BUTIRAN [Concomitant]
     Dosage: 20 UG, 1 WEEKLY
  13. METOPROLOL [Concomitant]
     Active Substance: METOPROLOL
     Indication: HYPERTENSION
     Dosage: 1 DF, DAILY
  14. LEVOTHYROXINE SODIUM. [Concomitant]
     Active Substance: LEVOTHYROXINE SODIUM
     Dosage: 75 UG, QD
     Route: 048
  15. VITAMIN D3 [Concomitant]
     Active Substance: CHOLECALCIFEROL
  16. BUTIRAN [Concomitant]
     Dosage: 10 MCG/HR PTWK 1 WEEKLY

REACTIONS (24)
  - Vision blurred [Unknown]
  - Glossodynia [Unknown]
  - Nausea [Unknown]
  - Splenomegaly [Unknown]
  - Dry eye [Unknown]
  - Pain in extremity [Unknown]
  - Aphthous stomatitis [Unknown]
  - Liver function test abnormal [Unknown]
  - Muscular weakness [Unknown]
  - Gait disturbance [Unknown]
  - Retinitis [Unknown]
  - Mouth ulceration [Recovered/Resolved]
  - Insomnia [Unknown]
  - Tongue injury [Unknown]
  - Multiple sclerosis [Unknown]
  - Fatigue [Unknown]
  - Hepatic cyst [Unknown]
  - Pyrexia [Unknown]
  - Appetite disorder [Unknown]
  - Musculoskeletal stiffness [Unknown]
  - Headache [Recovering/Resolving]
  - Visual acuity reduced [Recovered/Resolved]
  - White blood cell count abnormal [Unknown]
  - Chills [Unknown]

NARRATIVE: CASE EVENT DATE: 20131206
